FAERS Safety Report 5405146-7 (Version None)
Quarter: 2007Q3

REPORT INFORMATION
  Report Type: 
  Country: None (occurrence: None)
  Receive Date: 20070803
  Receipt Date: 20070801
  Transmission Date: 20080115
  Serious: Yes (Other)
  Sender: FDA-Public Use
  Company Number: US-ASTRAZENECA-2007UW18461

PATIENT
  Age: 556 Month
  Sex: Female
  Weight: 80.7 kg

DRUGS (5)
  1. ARIMIDEX [Suspect]
     Indication: BREAST CANCER
     Route: 048
  2. ZOLADEX [Concomitant]
     Indication: BREAST CANCER
     Route: 058
  3. ZOMETA [Concomitant]
     Indication: METASTASIS
     Dates: start: 20070101, end: 20070701
  4. TAMOXIFEN CITRATE [Concomitant]
     Indication: BREAST CANCER
     Dates: start: 20020101
  5. LORAZEPAM [Concomitant]

REACTIONS (1)
  - DENTAL CARIES [None]
